FAERS Safety Report 8385919-1 (Version None)
Quarter: 2012Q2

REPORT INFORMATION
  Report Type: 
  Country: None (occurrence: None)
  Receive Date: 20120525
  Receipt Date: 20120514
  Transmission Date: 20120825
  Serious: Yes (Other)
  Sender: FDA-Public Use
  Company Number: US-JNJFOC-20120512529

PATIENT
  Sex: Female
  Weight: 69.4 kg

DRUGS (5)
  1. REMICADE [Suspect]
     Indication: BEHCET'S SYNDROME
     Route: 042
     Dates: start: 20120420
  2. REMICADE [Suspect]
     Indication: RHEUMATOID ARTHRITIS
     Route: 042
     Dates: start: 20110101
  3. PAIN MEDICATION UNSPECIFIED [Concomitant]
     Indication: PAIN
     Dosage: HALF IN MORNING AND ONE IN NIGHT.
     Route: 048
  4. REMICADE [Suspect]
     Route: 042
     Dates: start: 20110101
  5. REMICADE [Suspect]
     Route: 042
     Dates: start: 20120420

REACTIONS (3)
  - INTERVERTEBRAL DISC PROTRUSION [None]
  - PAIN [None]
  - STAPHYLOCOCCAL INFECTION [None]
